FAERS Safety Report 16037634 (Version 1)
Quarter: 2019Q1

REPORT INFORMATION
  Report Type: Spontaneous
  Country: CN (occurrence: CN)
  Receive Date: 20190305
  Receipt Date: 20190305
  Transmission Date: 20190418
  Serious: Yes (Other)
  Sender: FDA-Public Use
  Company Number: CN-NAPPMUNDI-GBR-2019-0064691

PATIENT
  Age: 67 Year
  Sex: Male
  Weight: 52 kg

DRUGS (1)
  1. MS CONTIN [Suspect]
     Active Substance: MORPHINE SULFATE
     Indication: PAIN MANAGEMENT
     Dosage: 80 MG, BID
     Route: 048
     Dates: start: 20181115, end: 20181117

REACTIONS (3)
  - Unresponsive to stimuli [Recovering/Resolving]
  - Respiratory rate decreased [Unknown]
  - Drug abuse [Recovering/Resolving]

NARRATIVE: CASE EVENT DATE: 20181117
